FAERS Safety Report 4989266-7 (Version None)
Quarter: 2006Q2

REPORT INFORMATION
  Report Type: 
  Country: None (occurrence: None)
  Receive Date: 20060425
  Receipt Date: 20060410
  Transmission Date: 20061013
  Serious: Yes (Death)
  Sender: FDA-Public Use
  Company Number: S06-USA-01443-01

PATIENT
  Age: 43 Year
  Sex: Male

DRUGS (3)
  1. LEXAPRO [Suspect]
     Indication: ANXIETY
     Dates: start: 20041201, end: 20050326
  2. LEXAPRO [Suspect]
     Indication: PAIN
     Dates: start: 20041201, end: 20050326
  3. LEXAPRO [Suspect]
     Indication: STRESS
     Dates: start: 20041201, end: 20050326

REACTIONS (12)
  - AGITATION [None]
  - AMNESIA [None]
  - ANHEDONIA [None]
  - ANXIETY [None]
  - COMPLETED SUICIDE [None]
  - GUN SHOT WOUND [None]
  - HYPOAESTHESIA [None]
  - IRRITABILITY [None]
  - PAIN [None]
  - SELF-INJURIOUS IDEATION [None]
  - STOMACH DISCOMFORT [None]
  - WEIGHT DECREASED [None]
